FAERS Safety Report 7276836-9 (Version None)
Quarter: 2011Q1

REPORT INFORMATION
  Report Type: 
  Country: None (occurrence: None)
  Receive Date: 20110207
  Receipt Date: 20110125
  Transmission Date: 20110831
  Serious: Yes (Hospitalization)
  Sender: FDA-Public Use
  Company Number: US-BIOGENIDEC-2011BI003027

PATIENT
  Age: 57 Year
  Sex: Male

DRUGS (2)
  1. TYSABRI [Suspect]
     Indication: MULTIPLE SCLEROSIS
     Route: 042
     Dates: start: 20090619
  2. TYSABRI [Suspect]
     Route: 042
     Dates: start: 20061214, end: 20080605

REACTIONS (4)
  - LEUKOCYTOSIS [None]
  - GENERAL SYMPTOM [None]
  - PYREXIA [None]
  - URINARY TRACT INFECTION [None]
